FAERS Safety Report 11589943 (Version 1)
Quarter: 2015Q4

REPORT INFORMATION
  Report Type: Other
  Country: US (occurrence: US)
  Receive Date: 20151002
  Receipt Date: 20151002
  Transmission Date: 20160304
  Serious: No
  Sender: FDA-Public Use
  Company Number: US-NEPHRON PHARMACEUTICALS CORPORATION-1042502

PATIENT
  Age: 13 Year
  Sex: Female

DRUGS (1)
  1. ALBUTEROL SULFATE INHALATION SOLUTION, 0.083% [Suspect]
     Active Substance: ALBUTEROL SULFATE
     Indication: STATUS ASTHMATICUS
     Route: 055

REACTIONS (2)
  - Lactic acidosis [Recovered/Resolved]
  - Diastolic hypotension [Recovered/Resolved]
